FAERS Safety Report 5579538-X (Version None)
Quarter: 2008Q1

REPORT INFORMATION
  Report Type: 
  Country: None (occurrence: None)
  Receive Date: 20080102
  Receipt Date: 20071220
  Transmission Date: 20080703
  Serious: Yes (Life-Threatening, Hospitalization)
  Sender: FDA-Public Use
  Company Number: DE-ELI_LILLY_AND_COMPANY-DE200712004909

PATIENT
  Sex: Male

DRUGS (5)
  1. CYMBALTA [Suspect]
     Indication: AFFECTIVE DISORDER
     Dosage: 60 MG, DAILY (1/D)
     Route: 048
     Dates: start: 20070924, end: 20070930
  2. CYMBALTA [Suspect]
     Dosage: 9 D/F, DAILY (1/D)
     Route: 048
     Dates: start: 20071001, end: 20071001
  3. TETRAZEPAM [Concomitant]
     Indication: BACK PAIN
     Dosage: UNK, UNKNOWN
     Route: 065
     Dates: start: 20070924, end: 20070930
  4. TETRAZEPAM [Concomitant]
     Dosage: 1 D/F, UNKNOWN
     Route: 065
     Dates: start: 20071001, end: 20071001
  5. ALCOHOL [Concomitant]
     Dosage: UNK, UNKNOWN
     Route: 065

REACTIONS (4)
  - ALCOHOLISM [None]
  - DISINHIBITION [None]
  - OVERDOSE [None]
  - POISONING [None]
